FAERS Safety Report 10221181 (Version 1)
Quarter: 2014Q2

REPORT INFORMATION
  Report Type: Spontaneous
  Country: US (occurrence: US)
  Receive Date: 20140606
  Receipt Date: 20140606
  Transmission Date: 20141212
  Serious: No
  Sender: FDA-Public Use
  Company Number: US-GLAXOSMITHKLINE-A1063100A

PATIENT
  Age: 64 Year
  Sex: Male

DRUGS (20)
  1. BREO ELLIPTA [Suspect]
     Indication: CHRONIC OBSTRUCTIVE PULMONARY DISEASE
     Dosage: 1PUFF PER DAY
     Route: 055
     Dates: start: 20140221
  2. SPIRIVA [Concomitant]
  3. ALBUTEROL [Concomitant]
  4. ALPRAZOLAM [Concomitant]
  5. ASPIRIN [Concomitant]
  6. CARVEDILOL [Concomitant]
  7. CLOPIDOGREL BISULFATE [Concomitant]
  8. COZAAR [Concomitant]
  9. VITAMIN B [Concomitant]
  10. GABAPENTIN [Concomitant]
  11. LEVEMIR [Concomitant]
  12. LEXAPRO [Concomitant]
  13. LIPITOR [Concomitant]
  14. NITROGLYCERIN [Concomitant]
  15. NOVOLOG [Concomitant]
  16. OXYGEN [Concomitant]
  17. POTASSIUM [Concomitant]
  18. UNSPECIFIED MEDICATION [Concomitant]
  19. TOPIRAMATE [Concomitant]
  20. XOPENEX [Concomitant]

REACTIONS (7)
  - Swollen tongue [Recovering/Resolving]
  - Candida infection [Not Recovered/Not Resolved]
  - Tongue coated [Not Recovered/Not Resolved]
  - Oral mucosal discolouration [Not Recovered/Not Resolved]
  - Secretion discharge [Not Recovered/Not Resolved]
  - Dysphonia [Not Recovered/Not Resolved]
  - Dysphagia [Unknown]
